FAERS Safety Report 20873941 (Version 1)
Quarter: 2022Q2

REPORT INFORMATION
  Report Type: Spontaneous
  Country: US (occurrence: None)
  Receive Date: 20220525
  Receipt Date: 20220525
  Transmission Date: 20220721
  Serious: Yes (Other)
  Sender: FDA-Public Use
  Company Number: None

PATIENT
  Sex: Male

DRUGS (3)
  1. IMATINIB MESYLATE [Suspect]
     Active Substance: IMATINIB MESYLATE
     Indication: Chronic myeloid leukaemia
     Dosage: TAKE 2 TABLETS (200 MG TOTAL) BY MOUTH DAILY?
     Route: 048
     Dates: start: 20210609
  2. ASPIRIN [Concomitant]
     Active Substance: ASPIRIN
  3. VITAMIN B [Concomitant]

REACTIONS (1)
  - Malignant neoplasm progression [None]
